FAERS Safety Report 19762978 (Version 1)
Quarter: 2021Q3

REPORT INFORMATION
  Report Type: Spontaneous
  Country: US (occurrence: US)
  Receive Date: 20210826
  Receipt Date: 20210826
  Transmission Date: 20211014
  Serious: Yes (Hospitalization)
  Sender: FDA-Public Use
  Company Number: None

PATIENT
  Sex: Male
  Weight: 12.6 kg

DRUGS (3)
  1. ETOPOSIDE (VP?16) [Concomitant]
     Active Substance: ETOPOSIDE
  2. CARBOPLATIN. [Suspect]
     Active Substance: CARBOPLATIN
  3. MELPHALAN. [Concomitant]
     Active Substance: MELPHALAN

REACTIONS (22)
  - Generalised oedema [None]
  - Hypoalbuminaemia [None]
  - Febrile neutropenia [None]
  - Oxygen saturation decreased [None]
  - Cough [None]
  - Dyspnoea [None]
  - Acidosis [None]
  - Irritability [None]
  - Hypophosphataemia [None]
  - Pneumonitis [None]
  - Abdominal distension [None]
  - Weight increased [None]
  - Atelectasis [None]
  - Respiratory failure [None]
  - Hypotension [None]
  - Blood bilirubin increased [None]
  - Bone pain [None]
  - Hypomagnesaemia [None]
  - Hypocalcaemia [None]
  - Pulmonary oedema [None]
  - Hypokalaemia [None]
  - Capillary leak syndrome [None]

NARRATIVE: CASE EVENT DATE: 20210305
